FAERS Safety Report 14529114 (Version 2)
Quarter: 2018Q1

REPORT INFORMATION
  Report Type: Spontaneous
  Country: US (occurrence: US)
  Receive Date: 20180214
  Receipt Date: 20180319
  Transmission Date: 20180509
  Serious: No
  Sender: FDA-Public Use
  Company Number: US-PFIZER INC-2018061763

PATIENT
  Age: 67 Year
  Sex: Female
  Weight: 59 kg

DRUGS (1)
  1. METHOTREXATE SODIUM. [Suspect]
     Active Substance: METHOTREXATE SODIUM
     Indication: RHEUMATOID ARTHRITIS
     Dosage: 12.5 MG, WEEKLY (2.5 MG, 5 TABLET ONE TIME A WEEK)

REACTIONS (1)
  - Drug effect incomplete [Unknown]
